FAERS Safety Report 7603785-6 (Version None)
Quarter: 2011Q3

REPORT INFORMATION
  Report Type: 
  Country: None (occurrence: None)
  Receive Date: 20110712
  Receipt Date: 20110706
  Transmission Date: 20111222
  Serious: Yes (Other)
  Sender: FDA-Public Use
  Company Number: US-GLAXOSMITHKLINE-A0935140A

PATIENT
  Age: 67 Year
  Sex: Female

DRUGS (15)
  1. TETRACYCLINE [Concomitant]
  2. BENICAR [Concomitant]
  3. LIPITOR [Concomitant]
  4. LISINOPRIL [Concomitant]
  5. VENTOLIN HFA [Suspect]
     Indication: BRONCHITIS
     Dosage: 2PUFF AS REQUIRED
     Route: 055
  6. GUAIFENESIN [Concomitant]
  7. PAROXETINE HCL [Concomitant]
  8. ALBUTEROL SULFATE AUTOHALER [Concomitant]
  9. AZITHROMYCIN [Concomitant]
  10. ADVAIR DISKUS 100/50 [Concomitant]
  11. CLARITIN [Concomitant]
  12. BUPROPION HCL [Concomitant]
  13. FLUTICASONE PROPIONATE [Concomitant]
  14. HYDROCHLOROTHIAZIDE [Concomitant]
  15. AMLODIPINE [Concomitant]

REACTIONS (10)
  - ASTHENIA [None]
  - PRODUCT QUALITY ISSUE [None]
  - HYPOXIA [None]
  - PYREXIA [None]
  - FATIGUE [None]
  - DYSPHONIA [None]
  - ACTIVITIES OF DAILY LIVING IMPAIRED [None]
  - MALAISE [None]
  - BACK DISORDER [None]
  - DRUG ADMINISTRATION ERROR [None]
